FAERS Safety Report 17909002 (Version 4)
Quarter: 2020Q4

REPORT INFORMATION
  Report Type: Spontaneous
  Country: US (occurrence: US)
  Receive Date: 20200617
  Receipt Date: 20201022
  Transmission Date: 20210113
  Serious: Yes (Other)
  Sender: FDA-Public Use
  Company Number: US-PFIZER INC-2020235315

PATIENT
  Age: 71 Year
  Sex: Female
  Weight: 83.91 kg

DRUGS (1)
  1. XELJANZ XR [Suspect]
     Active Substance: TOFACITINIB CITRATE
     Indication: RHEUMATOID ARTHRITIS
     Dosage: 11 MG, 1X/DAY
     Route: 048
     Dates: start: 2015, end: 202008

REACTIONS (8)
  - Swelling [Unknown]
  - Pyrexia [Recovering/Resolving]
  - Fluid retention [Unknown]
  - Gait disturbance [Unknown]
  - Fatigue [Not Recovered/Not Resolved]
  - Rheumatoid arthritis [Not Recovered/Not Resolved]
  - Depression [Unknown]
  - Movement disorder [Unknown]

NARRATIVE: CASE EVENT DATE: 202009
